FAERS Safety Report 9061961 (Version 1)
Quarter: 2013Q1

REPORT INFORMATION
  Report Type: Spontaneous
  Country: US (occurrence: US)
  Receive Date: 20130204
  Receipt Date: 20130204
  Transmission Date: 20140127
  Serious: Yes (Hospitalization, Other)
  Sender: FDA-Public Use
  Company Number: PHEH2013US002732

PATIENT
  Age: 81 Year
  Sex: Female

DRUGS (1)
  1. RECLAST [Suspect]
     Dosage: 5 MG YEARLY
     Route: 042
     Dates: start: 20121207, end: 20121207

REACTIONS (3)
  - Acute phase reaction [Recovered/Resolved]
  - Blood creatine increased [Recovered/Resolved]
  - Glomerular filtration rate decreased [Recovered/Resolved]
